FAERS Safety Report 9302371 (Version 2)
Quarter: 2013Q3

REPORT INFORMATION
  Report Type: Report from Study
  Country: DE (occurrence: DE)
  Receive Date: 20130522
  Receipt Date: 20130715
  Transmission Date: 20140515
  Serious: Yes (Hospitalization)
  Sender: FDA-Public Use
  Company Number: DE-BIOGENIDEC-2013BI017667

PATIENT
  Age: 49 Year
  Sex: Female
  Weight: 108 kg

DRUGS (5)
  1. BG00012 [Suspect]
     Indication: MULTIPLE SCLEROSIS
     Dates: start: 20110415
  2. CORDINATE [Concomitant]
     Indication: HYPERTENSION
     Route: 048
     Dates: start: 20101122
  3. EBASTINE [Concomitant]
     Indication: RHINITIS ALLERGIC
     Route: 048
     Dates: start: 20110221
  4. SYMBICORT [Concomitant]
     Indication: ASTHMA
     Dates: start: 2004
  5. SALBUTAMOL [Concomitant]
     Indication: ASTHMA
     Dates: start: 2008

REACTIONS (1)
  - Menorrhagia [Recovered/Resolved]
